FAERS Safety Report 9902436 (Version 2)
Quarter: 2014Q1

REPORT INFORMATION
  Report Type: Spontaneous
  Country: US (occurrence: US)
  Receive Date: 20140217
  Receipt Date: 20140217
  Transmission Date: 20141002
  Serious: No
  Sender: FDA-Public Use
  Company Number: US-GILEAD-2011-0047228

PATIENT
  Sex: Female

DRUGS (20)
  1. LETAIRIS [Suspect]
     Indication: PULMONARY ARTERIAL HYPERTENSION
     Dosage: 10 MG, UNK
     Route: 048
     Dates: start: 20100602
  2. LETAIRIS [Suspect]
     Dosage: 5 UNK, UNK
     Route: 048
     Dates: start: 20100209, end: 20100602
  3. REVATIO [Concomitant]
  4. APAP CODEINE [Concomitant]
  5. FUROSEMIDE [Concomitant]
  6. IMITREX                            /01044801/ [Concomitant]
  7. MIRAPEX [Concomitant]
  8. OMEPRAZOLE [Concomitant]
  9. POTASSIUM CHLORIDE [Concomitant]
  10. PRO-AIR [Concomitant]
  11. ADVIL                              /00044201/ [Concomitant]
  12. CALCIUM CARBONATE [Concomitant]
  13. EXCEDRIN                           /00110301/ [Concomitant]
  14. FERROUS SULFATE [Concomitant]
  15. MAGNESIUM [Concomitant]
  16. OXYGEN [Concomitant]
  17. VITAMIN C                          /00008001/ [Concomitant]
  18. VITAMIN D                          /00107901/ [Concomitant]
     Indication: PULMONARY ARTERIAL HYPERTENSION
  19. ALBUTEROL                          /00139501/ [Concomitant]
  20. PREDNISONE [Concomitant]

REACTIONS (3)
  - Liver disorder [Unknown]
  - Liver function test abnormal [Unknown]
  - Hepatomegaly [Unknown]
